FAERS Safety Report 4778453-9 (Version None)
Quarter: 2005Q3

REPORT INFORMATION
  Report Type: 
  Country: None (occurrence: None)
  Receive Date: 20050923
  Receipt Date: 20050923
  Transmission Date: 20060218
  Serious: Yes (Other)
  Sender: FDA-Public Use
  Company Number: None

PATIENT
  Sex: Female
  Weight: 62.1428 kg

DRUGS (2)
  1. COUMADIN [Suspect]
     Indication: ATRIAL FIBRILLATION
     Dosage: 1.25 MG ALT WITH 1MG    DAILY  PO
     Route: 048
     Dates: start: 20041201, end: 20050805
  2. CLINDAMYCIN [Suspect]
     Indication: PNEUMONIA
     Dosage: 900MG IV  Q8H THEN 300 MG PO
     Route: 042
     Dates: start: 20050801, end: 20050805

REACTIONS (2)
  - INTERNATIONAL NORMALISED RATIO INCREASED [None]
  - PROTHROMBIN TIME PROLONGED [None]
